FAERS Safety Report 5605359-5 (Version None)
Quarter: 2008Q1

REPORT INFORMATION
  Report Type: 
  Country: None (occurrence: None)
  Receive Date: 20080123
  Receipt Date: 20080111
  Transmission Date: 20080703
  Serious: Yes (Hospitalization)
  Sender: FDA-Public Use
  Company Number: TPA2007A02563

PATIENT
  Age: 61 Year
  Sex: Female
  Weight: 85.6 kg

DRUGS (14)
  1. PIOGLITAZONE HCL [Suspect]
     Indication: GLUCOSE TOLERANCE IMPAIRED
     Dosage: 1 IN 1 D, PER ORAL
     Route: 048
     Dates: start: 20040401
  2. DESIPRAMINE HCL [Concomitant]
  3. PROZAC [Concomitant]
  4. SYNTHROID [Concomitant]
  5. XANAX [Concomitant]
  6. MELOXICAM [Concomitant]
  7. MACROBID [Concomitant]
  8. HYDROCODONE BITARTRATE [Concomitant]
  9. PHENERGAN [Concomitant]
  10. IBUPROFEN [Concomitant]
  11. MELATONIN (MELATONIN) [Concomitant]
  12. TYLENOL ES (PARACETAMOL) [Concomitant]
  13. PROGESTERONE [Concomitant]
  14. TESTOSTERONE [Concomitant]

REACTIONS (1)
  - POSTOPERATIVE WOUND INFECTION [None]
